FAERS Safety Report 5326776-7 (Version None)
Quarter: 2007Q2

REPORT INFORMATION
  Report Type: 
  Country: None (occurrence: None)
  Receive Date: 20070516
  Receipt Date: 20070504
  Transmission Date: 20071010
  Serious: Yes (Other)
  Sender: FDA-Public Use
  Company Number: DE-AMGEN-US217914

PATIENT
  Sex: Female

DRUGS (3)
  1. ENBREL [Suspect]
     Indication: DRUG USE FOR UNKNOWN INDICATION
     Dosage: 50 MG WEEKLY
     Route: 058
  2. LANTAREL [Suspect]
     Route: 051
  3. GLUCOCORTICOIDS [Concomitant]
     Route: 048

REACTIONS (3)
  - ALOPECIA [None]
  - NASOPHARYNGITIS [None]
  - SALIVARY GLAND ENLARGEMENT [None]
